FAERS Safety Report 5443967-5 (Version None)
Quarter: 2007Q3

REPORT INFORMATION
  Report Type: 
  Country: None (occurrence: None)
  Receive Date: 20070905
  Receipt Date: 20070824
  Transmission Date: 20080115
  Serious: Yes (Other)
  Sender: FDA-Public Use
  Company Number: JP-PFIZER INC-2007072648

PATIENT
  Sex: Male

DRUGS (5)
  1. ESTRACYT [Suspect]
     Route: 048
     Dates: start: 20070720, end: 20070803
  2. CLOTIAZEPAM [Concomitant]
     Dates: start: 20030101
  3. TAMSULOSIN HCL [Concomitant]
     Dates: start: 20070101
  4. DONEPEZIL HCL [Concomitant]
     Dates: start: 20070101
  5. CANDESARTAN CILEXETIL [Concomitant]
     Dates: start: 20030101

REACTIONS (1)
  - EMBOLISM [None]
